FAERS Safety Report 4956421-1 (Version None)
Quarter: 2006Q1

REPORT INFORMATION
  Report Type: 
  Country: None (occurrence: None)
  Receive Date: 20060329
  Receipt Date: 20060306
  Transmission Date: 20060701
  Serious: Yes (Life-Threatening)
  Sender: FDA-Public Use
  Company Number: 2006AC00399

PATIENT
  Age: 24 Year
  Sex: Male

DRUGS (1)
  1. PROPOFOL [Suspect]
     Indication: SEDATION

REACTIONS (3)
  - BRAIN OEDEMA [None]
  - INTRACRANIAL PRESSURE INCREASED [None]
  - THERAPY NON-RESPONDER [None]
